FAERS Safety Report 6734204-X (Version None)
Quarter: 2010Q2

REPORT INFORMATION
  Report Type: 
  Country: None (occurrence: None)
  Receive Date: 20100520
  Receipt Date: 20100519
  Transmission Date: 20101027
  Serious: Yes (Other)
  Sender: FDA-Public Use
  Company Number: JP-ROXANE LABORATORIES, INC.-2010-RO-00601RO

PATIENT
  Age: 13 Year
  Sex: Female
  Weight: 44 kg

DRUGS (6)
  1. MERCAPTOPURINE [Suspect]
     Indication: COLITIS ULCERATIVE
     Dosage: 150 MG
  2. MERCAPTOPURINE [Suspect]
     Indication: COLITIS
  3. PREDNISOLONE [Suspect]
     Indication: COLITIS ULCERATIVE
  4. PREDNISOLONE [Suspect]
     Indication: COLITIS
  5. MESALAZINE [Suspect]
     Indication: COLITIS ULCERATIVE
     Route: 048
  6. MESALAZINE [Suspect]
     Indication: COLITIS

REACTIONS (3)
  - BLOOD AMYLASE INCREASED [None]
  - COLITIS ULCERATIVE [None]
  - LIPASE INCREASED [None]
